FAERS Safety Report 21997273 (Version 1)
Quarter: 2023Q1

REPORT INFORMATION
  Report Type: Spontaneous
  Country: SA (occurrence: SA)
  Receive Date: 20230216
  Receipt Date: 20230216
  Transmission Date: 20230417
  Serious: Yes (Death)
  Sender: FDA-Public Use
  Company Number: SA-SA-2020SA139832

PATIENT
  Age: 2 Year

DRUGS (1)
  1. MYOZYME [Suspect]
     Active Substance: ALGLUCOSIDASE ALFA
     Indication: Glycogen storage disease type II
     Dosage: 20 MG/KG, QOW
     Route: 041

REACTIONS (3)
  - Disease progression [Fatal]
  - Liver disorder [Fatal]
  - Respiratory disorder [Fatal]
